FAERS Safety Report 12969154 (Version 2)
Quarter: 2016Q4

REPORT INFORMATION
  Report Type: Spontaneous
  Country: JP (occurrence: JP)
  Receive Date: 20161123
  Receipt Date: 20161202
  Transmission Date: 20170207
  Serious: Yes (Hospitalization, Other)
  Sender: FDA-Public Use
  Company Number: JP-PFIZER INC-2016535985

PATIENT
  Age: 15 Year
  Sex: Male
  Weight: 56 kg

DRUGS (5)
  1. VANCOMYCIN HCL [Suspect]
     Active Substance: VANCOMYCIN HYDROCHLORIDE
     Indication: ANTIBIOTIC THERAPY
     Dosage: UNK
  2. BETAMIPRON [Suspect]
     Active Substance: BETAMIPRON
     Indication: ANTIBIOTIC THERAPY
     Dosage: UNK
  3. VANCOMYCIN HCL [Suspect]
     Active Substance: VANCOMYCIN HYDROCHLORIDE
     Indication: WOUND
  4. LINEZOLID. [Concomitant]
     Active Substance: LINEZOLID
     Indication: WOUND
     Dosage: UNK
  5. PANIPENEM [Suspect]
     Active Substance: PANIPENEM
     Indication: ANTIBIOTIC THERAPY
     Dosage: UNK

REACTIONS (2)
  - Drug ineffective [Unknown]
  - Toxic shock syndrome staphylococcal [Recovered/Resolved]
